FAERS Safety Report 4579095-0 (Version None)
Quarter: 2005Q1

REPORT INFORMATION
  Report Type: 
  Country: None (occurrence: None)
  Receive Date: 20050119
  Receipt Date: 20040809
  Transmission Date: 20050727
  Serious: Yes (Other)
  Sender: FDA-Public Use
  Company Number: A03200402686

PATIENT
  Age: 69 Year
  Sex: Male
  Weight: 78.4723 kg

DRUGS (7)
  1. PLAVIX [Suspect]
     Indication: ARTERIAL DISORDER
     Dosage: 75 MG QD -ORAL
     Route: 048
  2. ASPIRIN [Suspect]
     Indication: ARTERIAL DISORDER
     Dosage: 81 MG QD - ORAL
     Route: 048
  3. RAMIPRIL [Concomitant]
  4. ATORVASTATIN CALCIUM [Concomitant]
  5. FINASTERIDE [Concomitant]
  6. TAMSULOSIN HYDROCHLORIDE [Concomitant]
  7. HYDROCHLOROTHIAZIDE [Concomitant]

REACTIONS (2)
  - RETINAL HAEMORRHAGE [None]
  - VISION BLURRED [None]
